FAERS Safety Report 8314366-3 (Version None)
Quarter: 2012Q2

REPORT INFORMATION
  Report Type: 
  Country: None (occurrence: None)
  Receive Date: 20120426
  Receipt Date: 20120419
  Transmission Date: 20120825
  Serious: Yes (Hospitalization, Other)
  Sender: FDA-Public Use
  Company Number: US-ASTRAZENECA-2011SE04088

PATIENT
  Age: 57 Year
  Sex: Female

DRUGS (2)
  1. SYMBICORT [Suspect]
     Route: 055
  2. NEXIUM [Suspect]
     Route: 048

REACTIONS (6)
  - SKIN ULCER [None]
  - LOCALISED INFECTION [None]
  - APHAGIA [None]
  - INTENTIONAL DRUG MISUSE [None]
  - PNEUMONIA [None]
  - SKIN CANCER [None]
